FAERS Safety Report 5194195-2 (Version None)
Quarter: 2006Q4

REPORT INFORMATION
  Report Type: 
  Country: None (occurrence: None)
  Receive Date: 20061222
  Receipt Date: 20061212
  Transmission Date: 20070319
  Serious: Yes (Hospitalization, Other)
  Sender: FDA-Public Use
  Company Number: 061213-0001116

PATIENT
  Age: 14 Year
  Sex: Female

DRUGS (2)
  1. METHAMPHETAMINE HYDROCHLORIDE [Suspect]
     Indication: INTENTIONAL DRUG MISUSE
  2. ORAL CONTRACEPTIVES [Concomitant]

REACTIONS (28)
  - AGITATION [None]
  - BACTERIAL INFECTION [None]
  - BRAIN NATRIURETIC PEPTIDE INCREASED [None]
  - CARDIAC FAILURE CONGESTIVE [None]
  - CARDIOMYOPATHY [None]
  - CONTINUOUS HAEMODIAFILTRATION [None]
  - DELIRIUM [None]
  - DISORIENTATION [None]
  - DISSEMINATED INTRAVASCULAR COAGULATION [None]
  - DRUG ABUSER [None]
  - DRUG TOXICITY [None]
  - HEART RATE INCREASED [None]
  - HEPATITIS [None]
  - HYPERTENSION [None]
  - HYPERTHERMIA [None]
  - HYPERTHERMIA MALIGNANT [None]
  - HYPOXIA [None]
  - INTERNATIONAL NORMALISED RATIO INCREASED [None]
  - MULTI-ORGAN FAILURE [None]
  - MYOCARDITIS [None]
  - OVERDOSE [None]
  - PULMONARY OEDEMA [None]
  - RENAL FAILURE ACUTE [None]
  - RHABDOMYOLYSIS [None]
  - TACHYCARDIA [None]
  - TACHYPNOEA [None]
  - THROMBOCYTOPENIA [None]
  - WHITE BLOOD CELL COUNT INCREASED [None]
